FAERS Safety Report 10252474 (Version 2)
Quarter: 2014Q2

REPORT INFORMATION
  Report Type: Spontaneous
  Country: GB (occurrence: GB)
  Receive Date: 20140623
  Receipt Date: 20140623
  Transmission Date: 20141212
  Serious: Yes (Other)
  Sender: FDA-Public Use
  Company Number: GB-PFIZER INC-2014135631

PATIENT
  Age: 58 Year
  Sex: Female
  Weight: 80 kg

DRUGS (1)
  1. VIBRAMYCIN [Suspect]
     Indication: CHRONIC SINUSITIS
     Dosage: 100 MG, 2X/DAY
     Route: 048
     Dates: start: 20140205, end: 20140326

REACTIONS (2)
  - Photosensitivity reaction [Recovered/Resolved]
  - Dry skin [Recovered/Resolved]
